FAERS Safety Report 7263709-0 (Version None)
Quarter: 2011Q1

REPORT INFORMATION
  Report Type: 
  Country: None (occurrence: None)
  Receive Date: 20110130
  Receipt Date: 20101206
  Transmission Date: 20110831
  Serious: No
  Sender: FDA-Public Use
  Company Number: US-ABBOTT-10P-163-0689827-00

PATIENT
  Age: 15 Year
  Sex: Female

DRUGS (8)
  1. AMITRIPTYLINE HCL [Concomitant]
     Indication: INSOMNIA
  2. HUMIRA [Suspect]
     Indication: JUVENILE ARTHRITIS
     Dosage: INITIAL DOSE
     Dates: start: 20101120
  3. NAPROXEN [Concomitant]
     Indication: PRODUCT USED FOR UNKNOWN INDICATION
  4. FOLIC ACID [Concomitant]
     Indication: PRODUCT USED FOR UNKNOWN INDICATION
  5. DUREZOL 0.5% [Concomitant]
     Indication: UVEITIS
     Dosage: DAILY; IN RIGHT
  6. CALCIUM [Concomitant]
     Indication: PRODUCT USED FOR UNKNOWN INDICATION
     Dosage: DAILY
  7. FISH OIL [Concomitant]
     Indication: PRODUCT USED FOR UNKNOWN INDICATION
     Dosage: DAILY
  8. METHOTREXATE [Concomitant]
     Indication: PRODUCT USED FOR UNKNOWN INDICATION
     Route: 058

REACTIONS (4)
  - PYREXIA [None]
  - PAIN [None]
  - SINUS CONGESTION [None]
  - RHINORRHOEA [None]
